FAERS Safety Report 7639717-4 (Version None)
Quarter: 2011Q3

REPORT INFORMATION
  Report Type: 
  Country: None (occurrence: None)
  Receive Date: 20110727
  Receipt Date: 20110725
  Transmission Date: 20111222
  Serious: Yes (Hospitalization)
  Sender: FDA-Public Use
  Company Number: US-PFIZER INC-US-WYE-H01827207

PATIENT
  Age: 6 Year
  Sex: Male

DRUGS (4)
  1. CAFFEINE [Concomitant]
  2. SERTRALINE HYDROCHLORIDE [Suspect]
     Dosage: UNK
  3. DEXTROMETHORPHAN HYDROBROMIDE [Interacting]
     Dosage: 40 MG/KG, UNK
     Route: 048
  4. FENTANYL [Concomitant]

REACTIONS (6)
  - SEROTONIN SYNDROME [None]
  - ACCIDENTAL OVERDOSE [None]
  - LETHARGY [None]
  - ACCIDENTAL DRUG INTAKE BY CHILD [None]
  - MYDRIASIS [None]
  - DRUG INTERACTION [None]
